FAERS Safety Report 9548493 (Version 2)
Quarter: 2013Q4

REPORT INFORMATION
  Report Type: Spontaneous
  Country: US (occurrence: US)
  Receive Date: 20130924
  Receipt Date: 20131031
  Transmission Date: 20140711
  Serious: No
  Sender: FDA-Public Use
  Company Number: US-PFIZER INC-2013270250

PATIENT
  Age: 71 Year
  Sex: Male
  Weight: 71.66 kg

DRUGS (1)
  1. SUTENT [Suspect]
     Indication: RENAL CANCER
     Dosage: 37.5 MG, DAILY (12.5MG AND 25MG)
     Route: 048
     Dates: start: 20130530

REACTIONS (1)
  - Tongue ulceration [Recovered/Resolved]
